FAERS Safety Report 9376126 (Version 1)
Quarter: 2013Q2

REPORT INFORMATION
  Report Type: Spontaneous
  Country: US (occurrence: US)
  Receive Date: 20130629
  Receipt Date: 20130629
  Transmission Date: 20140414
  Serious: No
  Sender: FDA-Public Use
  Company Number: US-ASTRAZENECA-2013SE41948

PATIENT
  Age: 57 Year
  Sex: Female
  Weight: 112.9 kg

DRUGS (5)
  1. NEXIUM [Suspect]
     Indication: GASTROOESOPHAGEAL REFLUX DISEASE
     Route: 048
  2. NEXIUM [Suspect]
     Indication: GASTROOESOPHAGEAL REFLUX DISEASE
     Route: 048
  3. OMEPRAZOLE [Suspect]
     Dosage: GENERIC
     Route: 048
  4. DEPAKOTE [Concomitant]
     Dates: end: 201305
  5. PREVACID [Concomitant]

REACTIONS (15)
  - Bronchitis [Unknown]
  - Hypertension [Unknown]
  - Macular degeneration [Unknown]
  - Diabetes mellitus [Unknown]
  - Pulmonary hypertension [Unknown]
  - Cataract [Unknown]
  - Asthenopia [Unknown]
  - Movement disorder [Unknown]
  - Contusion [Unknown]
  - Ligament sprain [Unknown]
  - Visual impairment [Unknown]
  - Lung disorder [Unknown]
  - Headache [Unknown]
  - Confusional state [Unknown]
  - Disorientation [Unknown]
